FAERS Safety Report 16933067 (Version 2)
Quarter: 2020Q1

REPORT INFORMATION
  Report Type: Other
  Country: DE (occurrence: DE)
  Receive Date: 20191018
  Receipt Date: 20200114
  Transmission Date: 20200409
  Serious: Yes (Other)
  Sender: FDA-Public Use
  Company Number: DE-LUPIN PHARMACEUTICALS INC.-2019-06663

PATIENT
  Sex: Female
  Weight: 85 kg

DRUGS (3)
  1. TORASEMIDE [Suspect]
     Active Substance: TORSEMIDE
     Indication: PRODUCT USED FOR UNKNOWN INDICATION
     Dosage: UNK UNK, QD, 1-0-0
     Route: 048
     Dates: start: 201509
  2. LEVONORGESTREL AND ETHINYL ESTRADIOL TABLETS [Suspect]
     Active Substance: ETHINYL ESTRADIOL\LEVONORGESTREL
     Indication: ORAL CONTRACEPTION
     Dosage: UNK
     Route: 048
     Dates: start: 20180125, end: 20180210
  3. L-THYROX [Concomitant]
     Active Substance: LEVOTHYROXINE SODIUM
     Indication: PRODUCT USED FOR UNKNOWN INDICATION
     Dosage: UNK
     Route: 065
     Dates: start: 200703

REACTIONS (5)
  - Pulmonary embolism [Unknown]
  - Pelvic venous thrombosis [Unknown]
  - Pregnancy on contraceptive [Unknown]
  - Maternal exposure before pregnancy [Unknown]
  - Deep vein thrombosis [Unknown]

NARRATIVE: CASE EVENT DATE: 2018
